FAERS Safety Report 4425252-3 (Version None)
Quarter: 2004Q3

REPORT INFORMATION
  Report Type: 
  Country: None (occurrence: None)
  Receive Date: 20040813
  Receipt Date: 20040806
  Transmission Date: 20050211
  Serious: Yes (Other)
  Sender: FDA-Public Use
  Company Number: US-BRISTOL-MYERS SQUIBB COMPANY-12663100

PATIENT

DRUGS (1)
  1. ERBITUX [Suspect]
     Dosage: LOADING DOSE, POSSIBLY 400 MG/M2. DISCONTINUED.
     Route: 042
     Dates: start: 20040805, end: 20040805

REACTIONS (2)
  - BLOOD PRESSURE INCREASED [None]
  - DYSPNOEA [None]
